FAERS Safety Report 12247196 (Version 2)
Quarter: 2017Q1

REPORT INFORMATION
  Report Type: Spontaneous
  Country: FR (occurrence: FR)
  Receive Date: 20160407
  Receipt Date: 20170223
  Transmission Date: 20170428
  Serious: No
  Sender: FDA-Public Use
  Company Number: PHHY2016FR044757

PATIENT
  Age: 61 Year
  Sex: Male

DRUGS (3)
  1. HYDROXYCARBAMIDE [Suspect]
     Active Substance: HYDROXYUREA
     Indication: CHRONIC MYELOID LEUKAEMIA
     Route: 065
  2. IMATINIB [Suspect]
     Active Substance: IMATINIB
     Indication: CHRONIC MYELOID LEUKAEMIA
     Route: 065
  3. NILOTINIB [Suspect]
     Active Substance: NILOTINIB
     Indication: CHRONIC MYELOID LEUKAEMIA
     Route: 065

REACTIONS (1)
  - Cognitive disorder [Not Recovered/Not Resolved]
